FAERS Safety Report 10387113 (Version 1)
Quarter: 2014Q1

REPORT INFORMATION
  Report Type: Spontaneous
  Country: US (occurrence: None)
  Receive Date: 20140306
  Receipt Date: 20140306
  Transmission Date: 20141002
  Serious: Yes (Hospitalization, Other)
  Sender: FDA-Public Use
  Company Number: 163-21880-13093120

PATIENT
  Age: 67 Year
  Sex: Male
  Weight: 88 kg

DRUGS (7)
  1. REVLIMID [Suspect]
     Indication: PLASMA CELL MYELOMA
     Route: 048
     Dates: start: 20080115
  2. ZOCOR (SIMVASTATIN) [Concomitant]
  3. PROTONIX (PANTOPRAZOLE) [Concomitant]
  4. COUMADIN (WARFARIN SODIUM) [Concomitant]
  5. TIKOSYN (DOFETILIDE) [Concomitant]
  6. NEURONTIN (GABAPENTIN) [Concomitant]
  7. DEXAMETHASONE [Concomitant]

REACTIONS (3)
  - Cellulitis [None]
  - Headache [None]
  - Herpes zoster [None]
